FAERS Safety Report 11515913 (Version 2)
Quarter: 2016Q3

REPORT INFORMATION
  Report Type: Spontaneous
  Country: US (occurrence: US)
  Receive Date: 20150916
  Receipt Date: 20160919
  Transmission Date: 20161109
  Serious: No
  Sender: FDA-Public Use
  Company Number: US-BAUSCH-BL-2015-015237

PATIENT
  Age: 54 Year
  Sex: Female
  Weight: 68.1 kg

DRUGS (13)
  1. LIDODERM [Concomitant]
     Active Substance: LIDOCAINE
     Indication: PAIN
     Route: 061
  2. LIDOCAINE JELLY [Concomitant]
     Active Substance: LIDOCAINE
     Indication: PAIN
     Route: 061
  3. MARINOL [Concomitant]
     Active Substance: DRONABINOL
     Indication: INCREASED APPETITE
  4. DIASTAT [Suspect]
     Active Substance: DIAZEPAM
     Indication: RECTAL SPASM
     Dosage: 12-17MG UP TO THREE TIMES A DAY
     Route: 054
  5. OXYCONTIN [Concomitant]
     Active Substance: OXYCODONE HYDROCHLORIDE
     Indication: PAIN
  6. ZOFRAN [Concomitant]
     Active Substance: ONDANSETRON HYDROCHLORIDE
     Indication: VOMITING
  7. LOMOTIL [Concomitant]
     Active Substance: ATROPINE SULFATE\DIPHENOXYLATE HYDROCHLORIDE
     Indication: DIARRHOEA
  8. VOLTAREN [Concomitant]
     Active Substance: DICLOFENAC SODIUM
     Indication: PAIN
     Route: 061
  9. NAMENDA [Concomitant]
     Active Substance: MEMANTINE HYDROCHLORIDE
     Indication: DRUG INTOLERANCE
  10. DIASTAT [Suspect]
     Active Substance: DIAZEPAM
     Dosage: AS NEEDED
     Route: 054
  11. HYDROMORPHONE [Concomitant]
     Active Substance: HYDROMORPHONE
     Indication: PAIN
  12. ZOFRAN [Concomitant]
     Active Substance: ONDANSETRON HYDROCHLORIDE
     Indication: NAUSEA
  13. LISINOPRIL. [Concomitant]
     Active Substance: LISINOPRIL
     Indication: HYPERTENSION

REACTIONS (7)
  - Off label use [Not Recovered/Not Resolved]
  - Somnolence [Unknown]
  - Vulvovaginal burning sensation [Recovered/Resolved]
  - Urinary tract infection [Recovered/Resolved]
  - Incorrect dose administered [Unknown]
  - Upper respiratory tract infection [Recovered/Resolved]
  - Anorectal discomfort [Recovered/Resolved]
